FAERS Safety Report 4735754-8 (Version None)
Quarter: 2005Q3

REPORT INFORMATION
  Report Type: 
  Country: None (occurrence: None)
  Receive Date: 20050803
  Receipt Date: 20050803
  Transmission Date: 20060218
  Serious: Yes (Life-Threatening)
  Sender: FDA-Public Use
  Company Number: None

PATIENT
  Age: 28 Year
  Sex: Female
  Weight: 67.1324 kg

DRUGS (1)
  1. LUPRON [Suspect]
     Indication: IN VITRO FERTILISATION
     Dosage: IVF
     Route: 042
     Dates: start: 20030102, end: 20040923

REACTIONS (1)
  - COLON CANCER STAGE IV [None]
